FAERS Safety Report 22664404 (Version 1)
Quarter: 2023Q2

REPORT INFORMATION
  Report Type: Spontaneous
  Country: US (occurrence: None)
  Receive Date: 20230630
  Receipt Date: 20230630
  Transmission Date: 20230721
  Serious: Yes (Disabling, Other)
  Sender: FDA-Public Use
  Company Number: None

PATIENT
  Age: 67 Year
  Sex: Female

DRUGS (1)
  1. SYFOVRE [Suspect]
     Active Substance: PEGCETACOPLAN
     Indication: Macular degeneration
     Dosage: OTHER FREQUENCY : ONCE;?
     Route: 047
     Dates: start: 20230620

REACTIONS (2)
  - Blindness [None]
  - Retinal vasculitis [None]

NARRATIVE: CASE EVENT DATE: 20230629
